FAERS Safety Report 8875991 (Version 1)
Quarter: 2012Q4

REPORT INFORMATION
  Report Type: 
  Country: US (occurrence: US)
  Receive Date: 20121030
  Receipt Date: 20121030
  Transmission Date: 20130627
  Serious: Yes (Hospitalization)
  Sender: FDA-Public Use
  Company Number: PHHO2011US019304

PATIENT
  Age: 40 Year
  Sex: Female
  Weight: 64.8 kg

DRUGS (18)
  1. MYCOPHENOLATE MOFETIL [Suspect]
     Indication: RENAL TRANSPLANT
     Dosage: 1000 mg, BID
     Route: 048
     Dates: start: 20111019
  2. PREDNISONE [Suspect]
     Indication: PROPHYLAXIS AGAINST TRANSPLANT REJECTION
     Dosage: 35 mg, QD
     Route: 048
     Dates: start: 20111022, end: 20111106
  3. PREDNISONE [Suspect]
     Dosage: 25 mg, QD
     Route: 048
     Dates: start: 20111107, end: 20111112
  4. PREDNISONE [Suspect]
     Dosage: 15 mg, QD
     Route: 048
     Dates: start: 20111113, end: 20111115
  5. PREDNISONE [Suspect]
     Dosage: UNK
     Route: 048
     Dates: start: 20111116
  6. PROGRAF [Suspect]
     Indication: RENAL TRANSPLANT
     Dosage: 3 mg, BID
     Route: 048
     Dates: start: 20111020, end: 20111102
  7. PROGRAF [Suspect]
     Dosage: 5 mg, UNK
     Route: 048
     Dates: start: 20111103, end: 20111110
  8. PROGRAF [Suspect]
     Dosage: 2 mg, BID
     Route: 048
     Dates: start: 20111111, end: 20111115
  9. PROGRAF [Suspect]
     Dosage: 3 mg, QD
     Route: 048
     Dates: start: 20111116, end: 20111206
  10. PROGRAF [Suspect]
     Dosage: 2 mg, BID
     Route: 048
     Dates: start: 20111207, end: 20120927
  11. PROGRAF [Suspect]
     Dosage: 3 mg, BID
     Route: 048
     Dates: start: 20120928
  12. COREG [Concomitant]
     Indication: HYPERTENSION
     Dosage: 12.5 mg, BID
     Route: 048
     Dates: start: 20111103
  13. PROCARDIA XL [Concomitant]
     Indication: HYPERTENSION
     Dosage: 90 mg, QD
     Route: 048
     Dates: start: 200905
  14. CLONIDINE HYDROCHLORIDE [Concomitant]
     Indication: HYPERTENSION
     Dosage: 0.3 mg, Q8H
     Route: 048
     Dates: start: 200905
  15. VALCYTE [Concomitant]
     Indication: INFECTION PROPHYLAXIS
     Dosage: 450 mg, QD
     Route: 048
     Dates: start: 20111020
  16. BACTRIM [Concomitant]
     Indication: INFECTION PROPHYLAXIS
     Dosage: UNK
     Route: 048
     Dates: start: 20111020
  17. PRILOSEC [Concomitant]
     Indication: PROPHYLAXIS AGAINST GASTROINTESTINAL ULCER
     Dosage: 20 mg, QD
     Route: 048
  18. NORCO [Concomitant]
     Indication: PAIN PROPHYLAXIS
     Dosage: UNK
     Route: 048
     Dates: start: 20111022

REACTIONS (2)
  - Diabetes mellitus [Recovering/Resolving]
  - Dehydration [Not Recovered/Not Resolved]
